FAERS Safety Report 12289753 (Version 1)
Quarter: 2016Q2

REPORT INFORMATION
  Report Type: Spontaneous
  Country: US (occurrence: None)
  Receive Date: 20160420
  Receipt Date: 20160420
  Transmission Date: 20160815
  Serious: Yes (Disabling)
  Sender: FDA-Public Use
  Company Number: None

PATIENT
  Age: 65 Year
  Sex: Female
  Weight: 54.43 kg

DRUGS (8)
  1. HYDROCODONE BITARTRATE AND ACETAMINOPHEN [Suspect]
     Active Substance: ACETAMINOPHEN\HYDROCODONE BITARTRATE
     Indication: PAIN
     Dosage: 5-325 MG TAB EVERY 6 HOURS AS NEEDED CRUSHED-FEEDING TUBE. WITH WATER
     Dates: start: 20140426, end: 20140911
  2. PHENOBARBITAL. [Concomitant]
     Active Substance: PHENOBARBITAL
  3. PHENYTOIN. [Concomitant]
     Active Substance: PHENYTOIN
  4. WHEEL CHAIR [Concomitant]
  5. BED PANS [Concomitant]
  6. FEEDING TUBE [Concomitant]
  7. CATHATERS [Concomitant]
  8. WARFARIN [Concomitant]
     Active Substance: WARFARIN

REACTIONS (4)
  - Generalised tonic-clonic seizure [None]
  - Anticonvulsant drug level decreased [None]
  - Bedridden [None]
  - Nephrolithiasis [None]

NARRATIVE: CASE EVENT DATE: 20140505
